FAERS Safety Report 11346484 (Version 1)
Quarter: 2015Q3

REPORT INFORMATION
  Report Type: Spontaneous
  Country: US (occurrence: US)
  Receive Date: 20150803
  Receipt Date: 20150803
  Transmission Date: 20151125
  Serious: No
  Sender: FDA-Public Use
  Company Number: US-ELI_LILLY_AND_COMPANY-US201010003981

PATIENT
  Age: 29 Year
  Sex: Male

DRUGS (2)
  1. ZYPREXA [Suspect]
     Active Substance: OLANZAPINE
     Dosage: 20 MG, DAILY (1/D)
     Dates: end: 201007
  2. ZYPREXA [Suspect]
     Active Substance: OLANZAPINE
     Indication: SCHIZOPHRENIA
     Dosage: 20 MG, DAILY (1/D)
     Dates: start: 2004

REACTIONS (10)
  - Fear [Unknown]
  - Dizziness [Unknown]
  - Bradyphrenia [Unknown]
  - Asthenia [Unknown]
  - Somnolence [Unknown]
  - Adverse drug reaction [Unknown]
  - Swelling face [Recovering/Resolving]
  - Irritability [Unknown]
  - Restlessness [Unknown]
  - Personality change [Unknown]
